FAERS Safety Report 6999429-7 (Version None)
Quarter: 2010Q3

REPORT INFORMATION
  Report Type: 
  Country: None (occurrence: None)
  Receive Date: 20100920
  Receipt Date: 20100907
  Transmission Date: 20110219
  Serious: Yes (Other)
  Sender: FDA-Public Use
  Company Number: PHHY2010IT59553

PATIENT
  Age: 27 Year
  Sex: Female

DRUGS (12)
  1. CYCLOSPORINE [Suspect]
     Indication: RENAL TRANSPLANT
  2. MYCOPHENOLATE MOFETIL [Interacting]
     Dosage: UNK
  3. STEROIDS NOS [Interacting]
  4. ANTIRETROVIRAL THERAPY [Interacting]
  5. LOPINAVIR [Concomitant]
     Dosage: UNK
  6. RITONAVIR [Concomitant]
  7. ZIDOVUDINE [Concomitant]
     Dosage: UNK
  8. ENFUVIRTIDE [Concomitant]
  9. LAMIVUDINE [Concomitant]
     Dosage: UNK
  10. DARUNAVIR [Concomitant]
  11. ETRAVIRINE [Concomitant]
  12. GANCICLOVIR [Concomitant]

REACTIONS (13)
  - BONE INFARCTION [None]
  - CATARACT [None]
  - DIABETES MELLITUS [None]
  - DRUG INTERACTION [None]
  - HIP ARTHROPLASTY [None]
  - HIV INFECTION [None]
  - IMMUNOSUPPRESSANT DRUG LEVEL INCREASED [None]
  - OSTEOPOROSIS [None]
  - PNEUMONIA CYTOMEGALOVIRAL [None]
  - SPINAL FRACTURE [None]
  - SURGERY [None]
  - TRAUMATIC FRACTURE [None]
  - TREATMENT NONCOMPLIANCE [None]
